FAERS Safety Report 8197044-3 (Version None)
Quarter: 2012Q1

REPORT INFORMATION
  Report Type: 
  Country: None (occurrence: None)
  Receive Date: 20120309
  Receipt Date: 20120228
  Transmission Date: 20120608
  Serious: Yes (Other)
  Sender: FDA-Public Use
  Company Number: BE-ELI_LILLY_AND_COMPANY-BE201203000061

PATIENT
  Sex: Female

DRUGS (3)
  1. FLECAINIDE ACETATE [Concomitant]
     Indication: CARDIAC DISORDER
     Dosage: 200 MG, UNK
  2. SERENASE                           /00027401/ [Concomitant]
     Indication: SLEEP DISORDER
     Dosage: 2.5 MG, UNK
  3. FORTEO [Suspect]
     Dosage: UNK
     Dates: start: 20111130

REACTIONS (2)
  - CEREBROVASCULAR ACCIDENT [None]
  - INSOMNIA [None]
